FAERS Safety Report 18753490 (Version 2)
Quarter: 2021Q1

REPORT INFORMATION
  Report Type: Spontaneous
  Country: CH (occurrence: CH)
  Receive Date: 20210118
  Receipt Date: 20210120
  Transmission Date: 20210419
  Serious: Yes (Other)
  Sender: FDA-Public Use
  Company Number: CH-BAUSCH-BL-2021-001047

PATIENT
  Age: 39 Year
  Sex: Female

DRUGS (6)
  1. PREDNICARBATE. [Suspect]
     Active Substance: PREDNICARBATE
     Indication: ECZEMA
     Route: 003
     Dates: end: 20201125
  2. PREDNITOP [PREDNICARBATE] [Suspect]
     Active Substance: PREDNICARBATE
     Indication: ECZEMA
     Route: 003
     Dates: end: 20201125
  3. PREDNICARBATE. [Suspect]
     Active Substance: PREDNICARBATE
     Indication: VITILIGO
  4. ELIDEL [Suspect]
     Active Substance: PIMECROLIMUS
     Indication: ECZEMA
     Route: 003
     Dates: end: 20201125
  5. PREDNITOP [PREDNICARBATE] [Suspect]
     Active Substance: PREDNICARBATE
     Indication: VITILIGO
  6. ELIDEL [Suspect]
     Active Substance: PIMECROLIMUS
     Indication: VITILIGO

REACTIONS (2)
  - Abortion spontaneous [Recovered/Resolved]
  - Maternal exposure during pregnancy [Recovered/Resolved]

NARRATIVE: CASE EVENT DATE: 202010
